FAERS Safety Report 8730254 (Version 10)
Quarter: 2014Q4

REPORT INFORMATION
  Report Type: Spontaneous
  Country: US (occurrence: US)
  Receive Date: 20120817
  Receipt Date: 20141013
  Transmission Date: 20150529
  Serious: Yes (Hospitalization, Other)
  Sender: FDA-Public Use
  Company Number: US-009507513-1207USA000385

PATIENT
  Sex: Female

DRUGS (8)
  1. FOSAMAX [Suspect]
     Active Substance: ALENDRONATE SODIUM
     Indication: BONE LOSS
     Dosage: 70 MG, QW
     Route: 048
     Dates: end: 200810
  2. ALENDRONATE SODIUM. [Suspect]
     Active Substance: ALENDRONATE SODIUM
     Indication: BONE LOSS
  3. FOSAMAX [Suspect]
     Active Substance: ALENDRONATE SODIUM
     Indication: OSTEOPOROSIS
     Dosage: UNK
     Route: 048
     Dates: start: 1999, end: 200909
  4. FOSAMAX PLUS D [Suspect]
     Active Substance: ALENDRONATE SODIUM\CHOLECALCIFEROL
     Dosage: 70 MG, UNK
     Route: 048
     Dates: start: 20060919, end: 20080929
  5. BONIVA [Suspect]
     Active Substance: IBANDRONATE SODIUM
     Indication: BONE LOSS
  6. ALENDRONATE SODIUM. [Suspect]
     Active Substance: ALENDRONATE SODIUM
     Indication: OSTEOPOROSIS
     Dosage: 70 MG, QW
     Dates: start: 20081023, end: 200909
  7. FOSAMAX [Suspect]
     Active Substance: ALENDRONATE SODIUM
     Dosage: 10 MG, UNK
     Route: 048
     Dates: start: 20000129, end: 20010522
  8. BONIVA [Suspect]
     Active Substance: IBANDRONATE SODIUM
     Indication: OSTEOPOROSIS
     Dosage: 150 MG, MONTHLY
     Route: 048
     Dates: start: 20090923, end: 201203

REACTIONS (30)
  - Internal fixation of fracture [Unknown]
  - Kidney infection [Unknown]
  - Sleep disorder [Unknown]
  - Measles [Unknown]
  - Mumps [Unknown]
  - Blood pressure increased [Unknown]
  - Abdominal discomfort [Unknown]
  - Foot fracture [Unknown]
  - Foot fracture [Unknown]
  - Osteoarthritis [Unknown]
  - Varicella [Unknown]
  - Fatigue [Unknown]
  - Spinal osteoarthritis [Unknown]
  - Dental prosthesis placement [Unknown]
  - Vitamin D deficiency [Unknown]
  - Nasopharyngitis [Unknown]
  - Pyelonephritis acute [Recovering/Resolving]
  - Device dislocation [Unknown]
  - Low turnover osteopathy [Unknown]
  - Hyperlipidaemia [Unknown]
  - Migraine [Unknown]
  - Cystitis [Unknown]
  - Internal fixation of fracture [Unknown]
  - Femur fracture [Unknown]
  - Dyspepsia [Unknown]
  - Internal fixation of fracture [Unknown]
  - Dental prosthesis placement [Unknown]
  - Facial spasm [Unknown]
  - Hypothyroidism [Unknown]
  - Stress [Unknown]

NARRATIVE: CASE EVENT DATE: 19990713
